FAERS Safety Report 18344147 (Version 1)
Quarter: 2020Q4

REPORT INFORMATION
  Report Type: Report from Study
  Country: DE (occurrence: DE)
  Receive Date: 20201005
  Receipt Date: 20201005
  Transmission Date: 20210114
  Serious: Yes (Other)
  Sender: FDA-Public Use
  Company Number: DE-PFIZER INC-2020379388

PATIENT

DRUGS (1)
  1. CLINDAMYCIN HCL [Suspect]
     Active Substance: CLINDAMYCIN HYDROCHLORIDE
     Indication: EYE INFECTION TOXOPLASMAL
     Dosage: UNK, (900-1800 MG)

REACTIONS (1)
  - Duodenal ulcer haemorrhage [Unknown]
